FAERS Safety Report 5703288-X (Version None)
Quarter: 2008Q2

REPORT INFORMATION
  Report Type: 
  Country: None (occurrence: None)
  Receive Date: 20080411
  Receipt Date: 20080403
  Transmission Date: 20081010
  Serious: Yes (Other)
  Sender: FDA-Public Use
  Company Number: US-PFIZER INC-2008011634

PATIENT
  Sex: Male
  Weight: 154.54 kg

DRUGS (3)
  1. CELEBREX [Suspect]
     Indication: INJURY
     Route: 048
     Dates: start: 20080201, end: 20080202
  2. CELEBREX [Suspect]
     Indication: OSTEOARTHRITIS
  3. CORTISONE ACETATE [Suspect]
     Indication: ARTHRITIS

REACTIONS (3)
  - JOINT EFFUSION [None]
  - MIGRAINE [None]
  - PALPITATIONS [None]
